FAERS Safety Report 5994647-9 (Version None)
Quarter: 2008Q4

REPORT INFORMATION
  Report Type: 
  Country: None (occurrence: None)
  Receive Date: 20081212
  Receipt Date: 20081024
  Transmission Date: 20090506
  Serious: No
  Sender: FDA-Public Use
  Company Number: US-ABBOTT-08P-163-0475912-00

PATIENT
  Sex: Male
  Weight: 88.53 kg

DRUGS (9)
  1. HUMIRA [Suspect]
     Indication: RHEUMATOID ARTHRITIS
     Route: 058
     Dates: start: 20050912
  2. GENERIC [Concomitant]
     Indication: RHEUMATOID ARTHRITIS
  3. METHOTREXATE [Concomitant]
     Indication: RHEUMATOID ARTHRITIS
  4. POTASSIUM CHLORIDE [Concomitant]
     Indication: BLOOD POTASSIUM DECREASED
  5. LOTREL [Concomitant]
     Indication: HYPERTENSION
  6. PRAVASTATIN SODIUM [Concomitant]
     Indication: BLOOD CHOLESTEROL INCREASED
  7. DOXAZOSIN MESYLATE [Concomitant]
     Indication: HYPERTENSION
  8. SPIRONOLACT [Concomitant]
     Indication: HYPERTENSION
  9. PANTOPRAZOLE SODIUM [Concomitant]
     Indication: PROPHYLAXIS AGAINST GASTROINTESTINAL ULCER

REACTIONS (5)
  - EXCORIATION [None]
  - FALL [None]
  - IMPAIRED HEALING [None]
  - OPEN WOUND [None]
  - WOUND SECRETION [None]
